FAERS Safety Report 22261543 (Version 4)
Quarter: 2023Q2

REPORT INFORMATION
  Report Type: Report from Study
  Country: BR (occurrence: BR)
  Receive Date: 20230427
  Receipt Date: 20230601
  Transmission Date: 20230722
  Serious: Yes (Other)
  Sender: FDA-Public Use
  Company Number: BR-ABBVIE-4728752

PATIENT
  Sex: Male
  Weight: 76 kg

DRUGS (4)
  1. HUMIRA [Suspect]
     Active Substance: ADALIMUMAB
     Indication: Ankylosing spondylitis
     Dosage: STRENGTH 40 MILLIGRAM
     Route: 058
  2. METHOTREXATE [Concomitant]
     Active Substance: METHOTREXATE
     Indication: Ankylosing spondylitis
     Dosage: 2.50 ML
     Route: 048
     Dates: start: 202103
  3. INFLIXIMAB [Concomitant]
     Active Substance: INFLIXIMAB
     Indication: Ankylosing spondylitis
     Route: 042
     Dates: start: 202105, end: 202207
  4. INFLIXIMAB [Concomitant]
     Active Substance: INFLIXIMAB
     Indication: Ankylosing spondylitis
     Route: 042
     Dates: start: 202105, end: 202207

REACTIONS (6)
  - Drug-induced liver injury [Unknown]
  - Dizziness [Recovered/Resolved]
  - Liver function test increased [Unknown]
  - Headache [Recovered/Resolved]
  - Headache [Recovered/Resolved]
  - Nausea [Recovered/Resolved]

NARRATIVE: CASE EVENT DATE: 20230521
